FAERS Safety Report 8415719-5 (Version None)
Quarter: 2012Q2

REPORT INFORMATION
  Report Type: 
  Country: None (occurrence: None)
  Receive Date: 20120606
  Receipt Date: 20120529
  Transmission Date: 20120825
  Serious: Yes (Hospitalization, Other)
  Sender: FDA-Public Use
  Company Number: DE-JNJFOC-20120507239

PATIENT
  Age: 72 Year
  Sex: Female

DRUGS (6)
  1. PREDNISOLONE [Concomitant]
  2. GOLIMUMAB [Suspect]
     Indication: RHEUMATOID ARTHRITIS
     Route: 058
     Dates: start: 20101104, end: 20111216
  3. METHOTREXATE [Concomitant]
  4. PANTOPRAZOLE [Concomitant]
     Dates: start: 20111201
  5. TRAMAGIT [Concomitant]
     Dates: start: 20100801
  6. FOLIC ACID [Concomitant]

REACTIONS (2)
  - VARICOSE ULCERATION [None]
  - LEG AMPUTATION [None]
